FAERS Safety Report 16300128 (Version 1)
Quarter: 2019Q2

REPORT INFORMATION
  Report Type: Spontaneous
  Country: US (occurrence: US)
  Receive Date: 20190510
  Receipt Date: 20190510
  Transmission Date: 20190711
  Serious: Yes (Other)
  Sender: FDA-Public Use
  Company Number: US-009507513-1905USA001816

PATIENT
  Age: 22 Year
  Sex: Female
  Weight: 58.05 kg

DRUGS (2)
  1. ORTHO TRI CYCLEN [Concomitant]
     Active Substance: ETHINYL ESTRADIOL\NORGESTIMATE
  2. NEXPLANON [Suspect]
     Active Substance: ETONOGESTREL
     Indication: CONTRACEPTION
     Dosage: 1 ROD EVERY 3 YEARS
     Route: 030
     Dates: start: 201606

REACTIONS (5)
  - Device dislocation [Not Recovered/Not Resolved]
  - Complication associated with device [Recovered/Resolved]
  - Incorrect route of product administration [Unknown]
  - Device deployment issue [Not Recovered/Not Resolved]
  - Complication of device removal [Not Recovered/Not Resolved]

NARRATIVE: CASE EVENT DATE: 201606
